FAERS Safety Report 15503856 (Version 1)
Quarter: 2018Q4

REPORT INFORMATION
  Report Type: Spontaneous
  Country: US (occurrence: US)
  Receive Date: 20181009
  Receipt Date: 20181009
  Transmission Date: 20190205
  Serious: No
  Sender: FDA-Public Use
  Company Number: None

PATIENT
  Age: 59 Year
  Sex: Male

DRUGS (2)
  1. TALTZ [Suspect]
     Active Substance: IXEKIZUMAB
     Indication: PSORIASIS
     Dosage: INJECT 160MG (2 PEN) SUBCUTANEOUSLY AT WEEK 0 THEN 80MG (1 PEN) AT  WEEK 2  AS DIRECTED
     Route: 058
     Dates: start: 201802
  2. TALTZ [Suspect]
     Active Substance: IXEKIZUMAB
     Indication: PSORIATIC ARTHROPATHY
     Dosage: INJECT 160MG (2 PEN) SUBCUTANEOUSLY AT WEEK 0 THEN 80MG (1 PEN) AT  WEEK 2  AS DIRECTED
     Route: 058
     Dates: start: 201802

REACTIONS (4)
  - Contusion [None]
  - Skin laceration [None]
  - Psoriasis [None]
  - Impaired healing [None]
